FAERS Safety Report 8914867 (Version 1)
Quarter: 2012Q4

REPORT INFORMATION
  Report Type: Report from Study
  Country: TR (occurrence: TR)
  Receive Date: 20121119
  Receipt Date: 20121119
  Transmission Date: 20130627
  Serious: Yes (Death)
  Sender: FDA-Public Use
  Company Number: TR-ROCHE-1156568

PATIENT
  Age: 67 Year
  Sex: Female

DRUGS (1)
  1. CAPECITABINE [Suspect]
     Indication: GASTRIC CANCER
     Dosage: frequency: 3 +3
     Route: 048
     Dates: start: 20121006, end: 20121102

REACTIONS (1)
  - Disease progression [Fatal]
